FAERS Safety Report 6436468-9 (Version None)
Quarter: 2009Q4

REPORT INFORMATION
  Report Type: 
  Country: None (occurrence: None)
  Receive Date: 20091110
  Receipt Date: 20091110
  Transmission Date: 20100525
  Serious: No
  Sender: FDA-Public Use
  Company Number: None

PATIENT
  Age: 34 Year
  Sex: Female
  Weight: 115.2136 kg

DRUGS (1)
  1. LUPRON [Suspect]
     Indication: POLYCYSTIC OVARIES
     Dosage: 11.25 EVERY THREE MONTHS, IM
     Route: 030
     Dates: start: 20070215, end: 20070830

REACTIONS (11)
  - AMNESIA [None]
  - APHASIA [None]
  - ARTHRALGIA [None]
  - BONE PAIN [None]
  - LOSS OF LIBIDO [None]
  - MENOPAUSAL SYMPTOMS [None]
  - MIGRAINE [None]
  - SYSTEMIC LUPUS ERYTHEMATOSUS [None]
  - THYROID DISORDER [None]
  - VISUAL ACUITY REDUCED [None]
  - WEIGHT INCREASED [None]
